FAERS Safety Report 9192681 (Version 2)
Quarter: 2013Q1

REPORT INFORMATION
  Report Type: Spontaneous
  Country: IT (occurrence: None)
  Receive Date: 20130325
  Receipt Date: 20130328
  Transmission Date: 20140127
  Serious: Yes (Hospitalization)
  Sender: FDA-Public Use
  Company Number: AUR-APL-2013-02440

PATIENT
  Age: 69 Year
  Sex: Female

DRUGS (5)
  1. LEVOFLOXACIN [Suspect]
     Indication: PYREXIA
     Route: 048
     Dates: start: 20130225, end: 20130301
  2. XENAZINA (TETRABENAZINE) [Concomitant]
  3. TAVOR (LORAZEPAM) [Concomitant]
  4. SEROQUEL (QUETIAPINE FUMARATE) [Concomitant]
  5. AMARYL (GLIMEPIRIDE) [Concomitant]

REACTIONS (12)
  - Liver disorder [None]
  - Hepatic enzyme increased [None]
  - Blood pressure increased [None]
  - Blood bilirubin increased [None]
  - Gamma-glutamyltransferase increased [None]
  - Blood fibrinogen increased [None]
  - Alanine aminotransferase increased [None]
  - Aspartate aminotransferase increased [None]
  - Bilirubin conjugated increased [None]
  - Blood lactate dehydrogenase increased [None]
  - Body temperature decreased [None]
  - C-reactive protein increased [None]
